FAERS Safety Report 15480966 (Version 2)
Quarter: 2018Q4

REPORT INFORMATION
  Report Type: Report from Study
  Country: GR (occurrence: GR)
  Receive Date: 20181010
  Receipt Date: 20181022
  Transmission Date: 20190205
  Serious: Yes (Death, Hospitalization)
  Sender: FDA-Public Use
  Company Number: GR-ROCHE-2173004

PATIENT
  Age: 66 Year
  Sex: Male
  Weight: 54.5 kg

DRUGS (7)
  1. ATEZOLIZUMAB. [Suspect]
     Active Substance: ATEZOLIZUMAB
     Indication: NON-SMALL CELL LUNG CANCER
     Dosage: MOST RECENT DOSE OF ATEZOLIZUMAB PRIOR TO SAE ONSET 1200 MG ON 25/JUL/2018 AT 12:15.?ON 16/AUG/2018,
     Route: 042
     Dates: start: 20180725
  2. BRETARIS [Concomitant]
     Active Substance: ACLIDINIUM BROMIDE
     Route: 065
     Dates: start: 20180726
  3. ROLENIUM [Concomitant]
     Active Substance: FLUTICASONE PROPIONATE\SALMETEROL XINAFOATE
     Dosage: 50/250 UG (INHALANT)
     Route: 055
     Dates: end: 20180719
  4. LOPRESSOR [Concomitant]
     Active Substance: METOPROLOL TARTRATE
     Route: 048
     Dates: start: 20160101, end: 20180809
  5. FILICINE [Concomitant]
     Indication: HAEMATURIA
     Route: 048
     Dates: end: 20180719
  6. SALOSPIR [Concomitant]
     Active Substance: ASPIRIN
     Route: 048
     Dates: start: 20160101
  7. FOSTER NEXTHALER [Concomitant]
     Dosage: 400/12 MCOGM
     Route: 065
     Dates: start: 20180720

REACTIONS (4)
  - Bladder papilloma [Not Recovered/Not Resolved]
  - Respiratory failure [Fatal]
  - Haematuria [Not Recovered/Not Resolved]
  - Atrial fibrillation [Recovered/Resolved]

NARRATIVE: CASE EVENT DATE: 20180809
